FAERS Safety Report 6938582-8 (Version None)
Quarter: 2010Q3

REPORT INFORMATION
  Report Type: 
  Country: None (occurrence: None)
  Receive Date: 20100824
  Receipt Date: 20100813
  Transmission Date: 20110219
  Serious: Yes (Other)
  Sender: FDA-Public Use
  Company Number: GB-JNJFOC-20100805010

PATIENT
  Age: 61 Year
  Sex: Female
  Weight: 98 kg

DRUGS (3)
  1. INFLIXIMAB [Suspect]
     Indication: RHEUMATOID ARTHRITIS
     Route: 042
  2. INFLIXIMAB [Suspect]
     Route: 042
  3. METHOTREXATE [Concomitant]

REACTIONS (1)
  - DIARRHOEA [None]
